FAERS Safety Report 9018247 (Version 1)
Quarter: 2013Q1

REPORT INFORMATION
  Report Type: Spontaneous
  Country: US (occurrence: None)
  Receive Date: 20130111
  Receipt Date: 20130111
  Transmission Date: 20140127
  Serious: No
  Sender: FDA-Public Use
  Company Number: None

PATIENT
  Sex: Male

DRUGS (1)
  1. SPRYCEL [Suspect]
     Indication: CHRONIC MYELOID LEUKAEMIA
     Dosage: 100MG DAILY PO
     Route: 048
     Dates: start: 20121226

REACTIONS (3)
  - Hyperaesthesia [None]
  - Erythema [None]
  - Chest discomfort [None]
